FAERS Safety Report 4357521-X (Version None)
Quarter: 2004Q2

REPORT INFORMATION
  Report Type: 
  Country: None (occurrence: None)
  Receive Date: 20040511
  Receipt Date: 20040511
  Transmission Date: 20050107
  Serious: Yes (Hospitalization)
  Sender: FDA-Public Use
  Company Number: None

PATIENT
  Age: 53 Year
  Sex: Female
  Weight: 70.8 kg

DRUGS (12)
  1. WARFARIN SODIUM [Suspect]
     Indication: ANTICOAGULANT THERAPY
     Dosage: 2 MG PO DAILY
     Route: 048
  2. METROPROLOL [Concomitant]
  3. DIOVAN [Concomitant]
  4. TRAZODONE HCL [Concomitant]
  5. ZYPREXA [Concomitant]
  6. DARVOCET [Concomitant]
  7. POTASSIUM [Concomitant]
  8. DIGOXIN [Concomitant]
  9. FUROSEMIDE [Concomitant]
  10. VIT E [Concomitant]
  11. GLUCOPHAGE [Concomitant]
  12. ZYBAN [Concomitant]

REACTIONS (5)
  - EPISTAXIS [None]
  - GINGIVAL BLEEDING [None]
  - HAEMATEMESIS [None]
  - INTERNATIONAL NORMALISED RATIO INCREASED [None]
  - POST PROCEDURAL COMPLICATION [None]
